FAERS Safety Report 8254971 (Version 2)
Quarter: 2014Q1

REPORT INFORMATION
  Report Type: Report from Study
  Country: US (occurrence: US)
  Receive Date: 20111118
  Receipt Date: 20140326
  Transmission Date: 20141002
  Serious: Yes (Hospitalization, Other)
  Sender: FDA-Public Use
  Company Number: US-ALEXION-A201101455

PATIENT
  Age: 49 Year
  Sex: Female

DRUGS (7)
  1. SOLIRIS [Suspect]
     Indication: PAROXYSMAL NOCTURNAL HAEMOGLOBINURIA
     Dosage: 600 MG, UNK
     Route: 042
     Dates: start: 20101220, end: 20110111
  2. SOLIRIS [Suspect]
     Dosage: 900 MG, UNK
     Route: 042
     Dates: start: 20110118, end: 20110426
  3. SOLIRIS [Suspect]
     Dosage: 1200 MG, UNK
     Route: 042
     Dates: start: 20110510
  4. FOLIC ACID [Concomitant]
  5. DANAZOL [Concomitant]
  6. PREDNISONE [Concomitant]
  7. BACTRIM [Concomitant]

REACTIONS (5)
  - Haemolysis [Recovering/Resolving]
  - Haemoglobin decreased [Unknown]
  - Infection [Unknown]
  - White blood cell count decreased [Recovering/Resolving]
  - Blood lactate dehydrogenase increased [Recovering/Resolving]
